FAERS Safety Report 24302257 (Version 1)
Quarter: 2024Q3

REPORT INFORMATION
  Report Type: Spontaneous
  Country: FI (occurrence: FI)
  Receive Date: 20240910
  Receipt Date: 20240910
  Transmission Date: 20241016
  Serious: Yes (Hospitalization)
  Sender: PFIZER
  Company Number: FI-Blueprint Medicines Corporation-SO-FI-2024-001485

PATIENT
  Sex: Male
  Weight: 91.6 kg

DRUGS (12)
  1. PANTOPRAZOLE [Suspect]
     Active Substance: PANTOPRAZOLE
     Indication: Faeces discoloured
     Dosage: 40 MILLIGRAM, QD
     Route: 048
     Dates: start: 20240705
  2. PANTOPRAZOLE [Suspect]
     Active Substance: PANTOPRAZOLE
     Indication: Prophylaxis
     Dosage: UNK
     Route: 065
     Dates: start: 20240719, end: 20240719
  3. AVAPRITINIB [Suspect]
     Active Substance: AVAPRITINIB
     Indication: Gastrointestinal stromal tumour
     Dosage: UNK
     Route: 065
     Dates: end: 20240720
  4. AVAPRITINIB [Suspect]
     Active Substance: AVAPRITINIB
     Dosage: 300 MILLIGRAM, QD
     Route: 065
     Dates: start: 20220223
  5. AVAPRITINIB [Suspect]
     Active Substance: AVAPRITINIB
     Dosage: 200 MILLIGRAM, QD
     Route: 065
     Dates: start: 20220223
  6. AVAPRITINIB [Suspect]
     Active Substance: AVAPRITINIB
     Dosage: 300 MILLIGRAM, QOD
     Route: 065
     Dates: start: 20220223, end: 20240720
  7. AVAPRITINIB [Suspect]
     Active Substance: AVAPRITINIB
     Dosage: 200 MILLIGRAM, QOD
     Route: 065
     Dates: start: 20220223, end: 20240720
  8. AVAPRITINIB [Suspect]
     Active Substance: AVAPRITINIB
     Dosage: 300 MILLIGRAM, QOD
     Route: 065
     Dates: start: 20240726
  9. AVAPRITINIB [Suspect]
     Active Substance: AVAPRITINIB
     Dosage: 200 MILLIGRAM, QOD
     Route: 065
     Dates: start: 20240726
  10. ASPIRIN [Concomitant]
     Active Substance: ASPIRIN
     Indication: Prophylaxis
     Dosage: 100 MILLIGRAM, QD (ENTERIC COATED TABLET)
     Route: 048
  11. ASPIRIN [Concomitant]
     Active Substance: ASPIRIN
     Dosage: 50 MILLIGRAM, QD (ENTERIC COATED TABLET)
     Route: 048
  12. LOSARTAN [Concomitant]
     Active Substance: LOSARTAN\LOSARTAN POTASSIUM
     Indication: Hypertension
     Dosage: 100 MILLIGRAM, QD
     Route: 048

REACTIONS (2)
  - Anaemia [Recovering/Resolving]
  - Faeces discoloured [Recovered/Resolved]

NARRATIVE: CASE EVENT DATE: 20240719
